FAERS Safety Report 5874958-8 (Version None)
Quarter: 2008Q3

REPORT INFORMATION
  Report Type: 
  Country: None (occurrence: None)
  Receive Date: 20080908
  Receipt Date: 20080908
  Transmission Date: 20090109
  Serious: No
  Sender: FDA-Public Use
  Company Number: None

PATIENT
  Age: 48 Year
  Sex: Female
  Weight: 88.4514 kg

DRUGS (5)
  1. EFFEXOR XR [Suspect]
     Indication: ANXIETY
     Dosage: 300MG QD PO
     Route: 048
     Dates: start: 20040320, end: 20080725
  2. EFFEXOR XR [Suspect]
     Indication: DEPRESSION
     Dosage: 300MG QD PO
     Route: 048
     Dates: start: 20040320, end: 20080725
  3. EFFEXOR XR [Suspect]
     Indication: PREMENSTRUAL SYNDROME
     Dosage: 300MG QD PO
     Route: 048
     Dates: start: 20040320, end: 20080725
  4. WELLBUTRIN XL [Concomitant]
  5. NIRAVAM [Concomitant]

REACTIONS (7)
  - DRUG WITHDRAWAL HEADACHE [None]
  - DRUG WITHDRAWAL SYNDROME [None]
  - IMPAIRED WORK ABILITY [None]
  - NAUSEA [None]
  - PARAESTHESIA [None]
  - PERFORMANCE STATUS DECREASED [None]
  - VOMITING [None]
